FAERS Safety Report 22638933 (Version 1)
Quarter: 2023Q2

REPORT INFORMATION
  Report Type: Spontaneous
  Country: US (occurrence: US)
  Receive Date: 20230626
  Receipt Date: 20230626
  Transmission Date: 20230722
  Serious: Yes (Hospitalization, Other)
  Sender: FDA-Public Use
  Company Number: US-GRANULES-US-2023GRALIT00156

PATIENT
  Age: 39 Year
  Sex: Female

DRUGS (11)
  1. BUPROPION HYDROCHLORIDE [Suspect]
     Active Substance: BUPROPION HYDROCHLORIDE
     Indication: Anxiety
     Route: 065
  2. CLONIDINE [Suspect]
     Active Substance: CLONIDINE
     Indication: Anxiety
     Route: 065
  3. YOHIMBINE [Suspect]
     Active Substance: YOHIMBINE
     Indication: Anxiety
     Route: 065
  4. DESVENLAFAXINE [Suspect]
     Active Substance: DESVENLAFAXINE
     Indication: Anxiety
     Route: 065
  5. BUPRENORPHINE\NALOXONE [Concomitant]
     Active Substance: BUPRENORPHINE\NALOXONE
     Indication: Anxiety
     Route: 065
  6. LISDEXAMFETAMINE [Concomitant]
     Active Substance: LISDEXAMFETAMINE
     Indication: Anxiety
     Route: 065
  7. TRAZODONE [Concomitant]
     Active Substance: TRAZODONE HYDROCHLORIDE
     Indication: Anxiety
     Route: 065
  8. LEVONORGESTREL [Concomitant]
     Active Substance: LEVONORGESTREL
     Indication: Anxiety
     Route: 065
  9. ONDANSETRON [Concomitant]
     Active Substance: ONDANSETRON
     Indication: Product used for unknown indication
     Route: 065
  10. DIPHENHYDRAMINE [Concomitant]
     Active Substance: DIPHENHYDRAMINE
     Indication: Product used for unknown indication
     Route: 065
  11. FAMOTIDINE [Concomitant]
     Active Substance: FAMOTIDINE
     Indication: Product used for unknown indication
     Route: 065

REACTIONS (7)
  - Basal ganglia haemorrhage [Unknown]
  - Subarachnoid haemorrhage [Unknown]
  - Hypertensive emergency [Unknown]
  - Hemiparesis [Unknown]
  - Sympathomimetic effect [Unknown]
  - Aphasia [Unknown]
  - Drug interaction [Unknown]
